FAERS Safety Report 4586523-3 (Version None)
Quarter: 2005Q1

REPORT INFORMATION
  Report Type: 
  Country: None (occurrence: None)
  Receive Date: 20050218
  Receipt Date: 20031216
  Transmission Date: 20050727
  Serious: No
  Sender: FDA-Public Use
  Company Number: US-BRISTOL-MYERS SQUIBB COMPANY-12460093

PATIENT
  Age: 53 Year
  Sex: Female
  Weight: 58 kg

DRUGS (7)
  1. TAXOL [Suspect]
     Indication: GASTRIC CANCER
     Route: 042
     Dates: start: 20030801, end: 20031216
  2. ANZEMET [Concomitant]
     Indication: PREMEDICATION
     Route: 042
  3. DECADRON [Concomitant]
     Indication: PREMEDICATION
     Route: 042
  4. BENADRYL [Concomitant]
     Indication: PREMEDICATION
     Route: 042
  5. CIMETIDINE [Concomitant]
     Indication: PREMEDICATION
     Route: 042
  6. GLUTAMINE [Concomitant]
  7. VITAMIN B6 [Concomitant]

REACTIONS (10)
  - ASTHENIA [None]
  - CHOKING SENSATION [None]
  - DIZZINESS [None]
  - DRY MOUTH [None]
  - FEELING COLD [None]
  - HEPATIC ENZYME INCREASED [None]
  - NAIL DISCOLOURATION [None]
  - NAIL DISORDER [None]
  - NAUSEA [None]
  - NERVOUSNESS [None]
